FAERS Safety Report 21099368 (Version 2)
Quarter: 2022Q3

REPORT INFORMATION
  Report Type: Spontaneous
  Country: GB (occurrence: GB)
  Receive Date: 20220719
  Receipt Date: 20220722
  Transmission Date: 20221026
  Serious: Yes (Other)
  Sender: FDA-Public Use
  Company Number: GB-MHRA-MED-202205251522101850-V6IFY

PATIENT
  Age: 44 Year
  Sex: Female
  Weight: 75 kg

DRUGS (7)
  1. PAXLOVID [Suspect]
     Active Substance: NIRMATRELVIR\RITONAVIR
     Indication: COVID-19 treatment
     Dosage: 300 MG, 2X/DAY
     Dates: start: 20220519, end: 20220522
  2. RITONAVIR [Suspect]
     Active Substance: RITONAVIR
     Dosage: 150 MG, 2X/DAY
     Dates: start: 20220519, end: 20220522
  3. AZATHIOPRINE [Concomitant]
     Active Substance: AZATHIOPRINE
     Dosage: UNK
  4. CITALOPRAM [Concomitant]
     Active Substance: CITALOPRAM HYDROBROMIDE
     Dosage: UNK
  5. DIHYDROCODEINE [Concomitant]
     Active Substance: DIHYDROCODEINE
     Dosage: UNK
  6. INFLIXIMAB [Concomitant]
     Active Substance: INFLIXIMAB
     Indication: Colitis ulcerative
     Dosage: UNK
  7. LOPERAMIDE [Concomitant]
     Active Substance: LOPERAMIDE
     Indication: Colitis ulcerative
     Dosage: UNK

REACTIONS (7)
  - Hot flush [Recovering/Resolving]
  - Swelling [Unknown]
  - Cognitive disorder [Unknown]
  - Constipation [Unknown]
  - Nausea [Unknown]
  - Blood glucose decreased [Unknown]
  - Swelling face [Unknown]

NARRATIVE: CASE EVENT DATE: 20220520
